FAERS Safety Report 5843076-7 (Version None)
Quarter: 2008Q3

REPORT INFORMATION
  Report Type: 
  Country: None (occurrence: None)
  Receive Date: 20080812
  Receipt Date: 20080812
  Transmission Date: 20090109
  Serious: No
  Sender: FDA-Public Use
  Company Number: None

PATIENT
  Age: 1 Year
  Sex: Male
  Weight: 5.7 kg

DRUGS (7)
  1. REVATIO [Suspect]
     Indication: PULMONARY HYPERTENSION
     Dosage: 3.5 MG Q8H OTHER
     Route: 050
     Dates: start: 20080702, end: 20080702
  2. FENTANYL-25 [Concomitant]
  3. VECURONIUM BROMIDE [Concomitant]
  4. LORAZEPAM [Concomitant]
  5. SOLU-MEDROL [Concomitant]
  6. METHADONE HCL [Concomitant]
  7. PEPCID [Concomitant]

REACTIONS (1)
  - PRIAPISM [None]
